FAERS Safety Report 6161494-7 (Version None)
Quarter: 2009Q2

REPORT INFORMATION
  Report Type: 
  Country: None (occurrence: None)
  Receive Date: 20090421
  Receipt Date: 20090412
  Transmission Date: 20091009
  Serious: Yes (Other)
  Sender: FDA-Public Use
  Company Number: PHHY2009BR14086

PATIENT
  Sex: Male

DRUGS (4)
  1. DIOVAN HCT [Suspect]
     Indication: HYPERTENSION
     Dosage: 80/12.5 MG ONCE IN THE MORNING
     Route: 048
  2. SIMVASTATIN [Suspect]
     Dosage: ONE DF AT NIGHT
  3. BETAGAN [Concomitant]
     Indication: GLAUCOMA
     Dosage: ONE DROP AT EACH VISION IN THE MORNING AND NIGHT
  4. SYNTHROID [Concomitant]
     Dosage: 112 MCG ONCE IN THE MORNING
     Route: 048
     Dates: start: 20040801

REACTIONS (5)
  - BENIGN NEOPLASM OF THYROID GLAND [None]
  - BIOPSY THYROID GLAND ABNORMAL [None]
  - BLOOD CHOLESTEROL INCREASED [None]
  - THYROID CANCER [None]
  - THYROIDECTOMY [None]
